FAERS Safety Report 10403975 (Version 1)
Quarter: 2014Q3

REPORT INFORMATION
  Report Type: Spontaneous
  Country: US (occurrence: US)
  Receive Date: 20140822
  Receipt Date: 20140822
  Transmission Date: 20150326
  Serious: No
  Sender: FDA-Public Use
  Company Number: US-NOVEN-14US009870

PATIENT
  Age: 49 Year
  Sex: Female

DRUGS (1)
  1. MINIVELLE [Suspect]
     Active Substance: ESTRADIOL
     Indication: HORMONE REPLACEMENT THERAPY
     Dosage: 0.05 MG/DAY, CUTS INHALF FOR 0.025MG/DAY DOSAGE
     Route: 062

REACTIONS (5)
  - Drug prescribing error [Not Recovered/Not Resolved]
  - Off label use [Not Recovered/Not Resolved]
  - Wrong technique in drug usage process [Not Recovered/Not Resolved]
  - No adverse event [None]
  - Incorrect product storage [Not Recovered/Not Resolved]

NARRATIVE: CASE EVENT DATE: 201407
